FAERS Safety Report 4488204-3 (Version None)
Quarter: 2004Q4

REPORT INFORMATION
  Report Type: 
  Country: None (occurrence: None)
  Receive Date: 20041028
  Receipt Date: 20041018
  Transmission Date: 20050328
  Serious: Yes (Hospitalization)
  Sender: FDA-Public Use
  Company Number: FR-BRISTOL-MYERS SQUIBB COMPANY-12735742

PATIENT
  Age: 75 Year
  Sex: Male

DRUGS (5)
  1. HYDREA [Suspect]
     Route: 048
     Dates: start: 20040315, end: 20040913
  2. LEVOTHYROX [Suspect]
     Route: 048
     Dates: start: 20040815
  3. MONICOR [Suspect]
     Route: 048
     Dates: start: 20040715
  4. SECTRAL [Suspect]
     Route: 048
     Dates: start: 19950615, end: 20040908
  5. KARDEGIC [Suspect]
     Route: 048
     Dates: start: 19950615

REACTIONS (2)
  - GANGRENE [None]
  - NECROSIS ISCHAEMIC [None]
